FAERS Safety Report 4687485-0 (Version None)
Quarter: 2005Q2

REPORT INFORMATION
  Report Type: 
  Country: None (occurrence: None)
  Receive Date: 20050608
  Receipt Date: 20050608
  Transmission Date: 20051028
  Serious: Yes (Life-Threatening)
  Sender: FDA-Public Use
  Company Number: None

PATIENT
  Age: 53 Year
  Sex: Female
  Weight: 54.4316 kg

DRUGS (1)
  1. SUDAFED    PFIZER - NON-DROWSY SUDAFED MULTI-SYMPTOM SEVERECOLD [Suspect]
     Dosage: 2 CAPS ORAL EV 6 HRS.
     Route: 048

REACTIONS (5)
  - ANGINA PECTORIS [None]
  - DOCUMENTED HYPERSENSITIVITY TO ADMINISTERED DRUG [None]
  - DRUG HYPERSENSITIVITY [None]
  - PHARMACEUTICAL PRODUCT COMPLAINT [None]
  - RASH [None]
